FAERS Safety Report 20465990 (Version 5)
Quarter: 2022Q2

REPORT INFORMATION
  Report Type: Other
  Country: IT (occurrence: None)
  Receive Date: 20220212
  Receipt Date: 20220613
  Transmission Date: 20220721
  Serious: No
  Sender: FDA-Public Use
  Company Number: IT-ROCHE-3024187

PATIENT
  Age: 47 Year
  Sex: Female
  Weight: 68 kg

DRUGS (5)
  1. OCRELIZUMAB [Suspect]
     Active Substance: OCRELIZUMAB
     Indication: Relapsing-remitting multiple sclerosis
     Route: 042
     Dates: start: 20200708
  2. SOLU-MEDROL [Concomitant]
     Active Substance: METHYLPREDNISOLONE SODIUM SUCCINATE
     Route: 042
     Dates: start: 20220117, end: 20220117
  3. TRIMETON [Concomitant]
     Active Substance: CHLORPHENIRAMINE MALEATE
     Route: 042
     Dates: start: 20220117, end: 20220117
  4. ACETAMINOPHEN [Concomitant]
     Active Substance: ACETAMINOPHEN
     Route: 048
     Dates: start: 20220117, end: 20220117
  5. GABAPENTIN [Concomitant]
     Active Substance: GABAPENTIN
     Route: 048
     Dates: start: 20200725

REACTIONS (1)
  - COVID-19 [Recovered/Resolved]

NARRATIVE: CASE EVENT DATE: 20220118
